FAERS Safety Report 20521043 (Version 2)
Quarter: 2022Q1

REPORT INFORMATION
  Report Type: Spontaneous
  Country: GB (occurrence: GB)
  Receive Date: 20220225
  Receipt Date: 20220303
  Transmission Date: 20220423
  Serious: Yes (Other)
  Sender: FDA-Public Use
  Company Number: GB-BAXTER-2022BAX003520

PATIENT
  Age: 40 Year
  Sex: Female

DRUGS (4)
  1. SODIUM CHLORIDE [Suspect]
     Active Substance: SODIUM CHLORIDE
     Indication: Medication dilution
     Dosage: FIRST CYCLE?COMPOUNDED DOSE OF 2.7 ML
     Route: 042
     Dates: start: 20220210, end: 20220210
  2. SODIUM CHLORIDE [Suspect]
     Active Substance: SODIUM CHLORIDE
     Indication: Anaphylactic reaction
     Dosage: VIA FAST FLOWING DRIP
     Route: 041
     Dates: start: 20220210
  3. PACLITAXEL [Suspect]
     Active Substance: PACLITAXEL
     Indication: Product used for unknown indication
     Dosage: FIRST CYCLE?COMPOUNDED DOSE OF 2.7 ML
     Route: 042
     Dates: start: 20220210, end: 20220210
  4. ADRENALIN [Suspect]
     Active Substance: EPINEPHRINE
     Indication: Anaphylactic reaction
     Route: 065
     Dates: start: 20220210

REACTIONS (2)
  - Anaphylactic reaction [Unknown]
  - Back pain [Unknown]

NARRATIVE: CASE EVENT DATE: 20220210
